FAERS Safety Report 7402839-7 (Version None)
Quarter: 2011Q2

REPORT INFORMATION
  Report Type: 
  Country: None (occurrence: None)
  Receive Date: 20110408
  Receipt Date: 20110405
  Transmission Date: 20111010
  Serious: Yes (Death, Hospitalization)
  Sender: FDA-Public Use
  Company Number: US-B.I. PHARMACEUTICALS,INC./RIDGEFIELD-2011-BP-01911BP

PATIENT
  Age: 82 Year
  Sex: Male
  Weight: 83.46 kg

DRUGS (9)
  1. OMEPRAZOLE [Concomitant]
     Dosage: 20 MG
     Route: 048
  2. PRADAXA [Suspect]
     Indication: ATRIAL FIBRILLATION
     Route: 048
     Dates: start: 20101206, end: 20110125
  3. FLOMAX [Concomitant]
     Dosage: 0.8 MG
     Route: 048
  4. FINASTERIDE [Concomitant]
     Dosage: 5 MG
     Route: 048
  5. MULTI-VITAMIN [Concomitant]
     Route: 048
  6. NIASPAN [Concomitant]
     Dosage: 1500 MG
     Route: 048
  7. HYDROCHLOROTHIAZIDE [Concomitant]
     Dosage: 25 MG
     Route: 048
  8. AMLODIPINE [Concomitant]
     Dosage: 2.5 MG
     Route: 048
  9. BENAZEPRIL HYDROCHLORIDE [Concomitant]
     Dosage: 20 MG
     Route: 048

REACTIONS (7)
  - HEMIPARESIS [None]
  - HAEMORRHAGE INTRACRANIAL [None]
  - BRAIN HERNIATION [None]
  - LUNG INFILTRATION [None]
  - COMA [None]
  - DEPRESSED LEVEL OF CONSCIOUSNESS [None]
  - LOSS OF CONSCIOUSNESS [None]
